FAERS Safety Report 7974458-5 (Version None)
Quarter: 2011Q4

REPORT INFORMATION
  Report Type: 
  Country: None (occurrence: None)
  Receive Date: 20111213
  Receipt Date: 20111206
  Transmission Date: 20120403
  Serious: Yes (Hospitalization)
  Sender: FDA-Public Use
  Company Number: US-ASTRAZENECA-2011SE73927

PATIENT
  Age: 54 Year
  Sex: Female

DRUGS (6)
  1. WILBISTRONE [Concomitant]
  2. SEROQUEL [Suspect]
     Indication: DEPRESSION
     Route: 048
     Dates: start: 20080101
  3. LEVOTHYROXINE SODIUM [Concomitant]
  4. SEROQUEL [Suspect]
     Indication: BIPOLAR DISORDER
     Route: 048
     Dates: start: 20080101
  5. LANCIS [Concomitant]
  6. CRESTOR [Suspect]
     Route: 048

REACTIONS (2)
  - PNEUMONIA [None]
  - INSOMNIA [None]
